FAERS Safety Report 6880127-5 (Version None)
Quarter: 2010Q3

REPORT INFORMATION
  Report Type: 
  Country: None (occurrence: None)
  Receive Date: 20100728
  Receipt Date: 20091202
  Transmission Date: 20110219
  Serious: No
  Sender: FDA-Public Use
  Company Number: US-BRISTOL-MYERS SQUIBB COMPANY-14879308

PATIENT
  Age: 81 Year
  Sex: Female
  Weight: 68 kg

DRUGS (4)
  1. SPRYCEL [Suspect]
     Indication: CHRONIC MYELOID LEUKAEMIA
     Dosage: DURATION OF THERAPY: 6-9MONTHS
  2. LIPITOR [Concomitant]
  3. SYNTHROID [Concomitant]
  4. AMBIEN [Concomitant]

REACTIONS (2)
  - FATIGUE [None]
  - WHITE BLOOD CELL COUNT DECREASED [None]
